FAERS Safety Report 10903532 (Version 1)
Quarter: 2015Q1

REPORT INFORMATION
  Report Type: Report from Study
  Country: IN (occurrence: IN)
  Receive Date: 20150311
  Receipt Date: 20150311
  Transmission Date: 20150721
  Serious: Yes (Death, Hospitalization)
  Sender: FDA-Public Use
  Company Number: IN-BIOGENIDEC-2015BI030392

PATIENT
  Age: 46 Year
  Sex: Female

DRUGS (1)
  1. AVONEX [Suspect]
     Active Substance: INTERFERON BETA-1A
     Indication: MULTIPLE SCLEROSIS
     Route: 030
     Dates: start: 20140905

REACTIONS (3)
  - Multiple sclerosis relapse [Fatal]
  - Blindness unilateral [Unknown]
  - Abasia [Unknown]

NARRATIVE: CASE EVENT DATE: 20141205
